FAERS Safety Report 8622394-3 (Version None)
Quarter: 2012Q3

REPORT INFORMATION
  Report Type: 
  Country: None (occurrence: None)
  Receive Date: 20120827
  Receipt Date: 20120820
  Transmission Date: 20120928
  Serious: No
  Sender: FDA-Public Use
  Company Number: US-BIOGENIDEC-2012BI032556

PATIENT
  Age: 54 Year
  Sex: Female

DRUGS (1)
  1. TYSABRI [Suspect]
     Indication: MULTIPLE SCLEROSIS
     Route: 042
     Dates: start: 20080326

REACTIONS (5)
  - GAIT DISTURBANCE [None]
  - PERONEAL NERVE PALSY [None]
  - MULTIPLE SCLEROSIS [None]
  - TIBIA FRACTURE [None]
  - SECONDARY PROGRESSIVE MULTIPLE SCLEROSIS [None]
